FAERS Safety Report 8234380-6 (Version None)
Quarter: 2012Q1

REPORT INFORMATION
  Report Type: 
  Country: None (occurrence: None)
  Receive Date: 20120326
  Receipt Date: 20120319
  Transmission Date: 20120608
  Serious: Yes (Other)
  Sender: FDA-Public Use
  Company Number: US-BAYER-2011-114291

PATIENT
  Age: 43 Year
  Sex: Female
  Weight: 61 kg

DRUGS (3)
  1. YASMIN [Suspect]
     Indication: PREMENSTRUAL SYNDROME
     Dosage: UNK
     Dates: start: 20050101, end: 20080101
  2. PHENAZOPYRIDINE HCL TAB [Concomitant]
     Dosage: 100 MG, UNK
  3. LEVOTHYROXINE SODIUM [Concomitant]
     Dosage: 0.075 MG, UNK

REACTIONS (4)
  - PAIN [None]
  - DEEP VEIN THROMBOSIS [None]
  - MENTAL DISORDER [None]
  - INJURY [None]
